FAERS Safety Report 7717336-9 (Version None)
Quarter: 2011Q3

REPORT INFORMATION
  Report Type: 
  Country: None (occurrence: None)
  Receive Date: 20110823
  Receipt Date: 20110407
  Transmission Date: 20111222
  Serious: Yes (Disabling)
  Sender: FDA-Public Use
  Company Number: 2011028162

PATIENT
  Age: 55 Year
  Sex: Female
  Weight: 132.4503 kg

DRUGS (23)
  1. HEPARIN [Concomitant]
  2. METOLAZONE [Concomitant]
  3. DIOVAN [Concomitant]
  4. ZEMAIRA [Suspect]
  5. TENORMIN [Concomitant]
  6. TRICOR [Concomitant]
  7. ACETAMINOPHEN [Concomitant]
  8. NIFEDIPINE [Concomitant]
  9. SENNA PLUS (SENNA ALEXANDRINA) [Concomitant]
  10. OXYGEN [Concomitant]
  11. NOVOLOG [Concomitant]
  12. GLYCOLAX (MACROGOL) [Concomitant]
  13. ALBUTEROL [Concomitant]
  14. ZEMAIRA [Suspect]
     Indication: ALPHA-1 ANTI-TRYPSIN DEFICIENCY
     Dosage: SEE IMAGE
     Route: 042
     Dates: start: 20080520
  15. BUMEX [Concomitant]
  16. PROVENTIL [Concomitant]
  17. LEVOTHYROXINE SODIUM [Concomitant]
  18. NITROQUICK (GLYCERYL TRINITRATE) [Concomitant]
  19. ASPIRIN [Concomitant]
  20. LISINOPRIL [Concomitant]
  21. DOCUSATE [Concomitant]
  22. BETAMETHASONE [Concomitant]
  23. FORADIL [Concomitant]

REACTIONS (2)
  - RASH PRURITIC [None]
  - RASH [None]
